FAERS Safety Report 4514914-5 (Version None)
Quarter: 2004Q4

REPORT INFORMATION
  Report Type: 
  Country: None (occurrence: None)
  Receive Date: 20041129
  Receipt Date: 20041129
  Transmission Date: 20050328
  Serious: Yes (Other)
  Sender: FDA-Public Use
  Company Number: None

PATIENT
  Age: 48 Year
  Sex: Female
  Weight: 83.9154 kg

DRUGS (2)
  1. PAXIL [Suspect]
     Indication: DEPRESSION
     Dosage: 40MG TAB 1 X DAY  ORAL
     Route: 048
     Dates: start: 20000101, end: 20041120
  2. PAXIL [Suspect]
     Indication: PANIC DISORDER
     Dosage: 40MG TAB 1 X DAY  ORAL
     Route: 048
     Dates: start: 20000101, end: 20041120

REACTIONS (12)
  - ANOREXIA [None]
  - CHILLS [None]
  - DIZZINESS [None]
  - GAIT DISTURBANCE [None]
  - HEADACHE [None]
  - HOT FLUSH [None]
  - HYPERACUSIS [None]
  - MOTION SICKNESS [None]
  - PARAESTHESIA [None]
  - PAROSMIA [None]
  - VERTIGO [None]
  - VISION BLURRED [None]
